FAERS Safety Report 7609227-9 (Version None)
Quarter: 2011Q3

REPORT INFORMATION
  Report Type: 
  Country: None (occurrence: None)
  Receive Date: 20110714
  Receipt Date: 20110712
  Transmission Date: 20111222
  Serious: Yes (Other)
  Sender: FDA-Public Use
  Company Number: US-MERCK-1106USA01158

PATIENT
  Age: 61 Year
  Sex: Female

DRUGS (2)
  1. ZOCOR [Suspect]
     Indication: BLOOD CHOLESTEROL INCREASED
     Route: 048
     Dates: start: 19990101
  2. ZOCOR [Suspect]
     Route: 048
     Dates: end: 20101001

REACTIONS (9)
  - HEPATIC STEATOSIS [None]
  - MUSCLE SPASMS [None]
  - CHILLS [None]
  - CATARACT [None]
  - FIBROMYALGIA [None]
  - FLUSHING [None]
  - ARTHRITIS [None]
  - ADVERSE EVENT [None]
  - ANAEMIA [None]
